FAERS Safety Report 6477905-3 (Version None)
Quarter: 2009Q4

REPORT INFORMATION
  Report Type: 
  Country: None (occurrence: None)
  Receive Date: 20091207
  Receipt Date: 20091109
  Transmission Date: 20100525
  Serious: No
  Sender: FDA-Public Use
  Company Number: US-BAYER-200916743BCC

PATIENT
  Age: 76 Year
  Sex: Female
  Weight: 73 kg

DRUGS (13)
  1. ALEVE [Suspect]
     Indication: ARTHRALGIA
     Dosage: UNIT DOSE: 220 MG
     Route: 048
  2. ALEVE [Suspect]
     Dosage: TOTAL DAILY DOSE: 880 MG  UNIT DOSE: 220 MG
     Route: 048
     Dates: end: 20090901
  3. VITAMIN B6 [Concomitant]
     Route: 065
  4. MAGNESIUM [Concomitant]
     Route: 065
  5. CENTRUM [Concomitant]
     Route: 065
  6. METOPROLOL [Concomitant]
     Route: 065
  7. ZETIA [Concomitant]
     Route: 065
  8. SIMVASTATIN [Concomitant]
     Route: 065
  9. ZESTRIL [Concomitant]
     Route: 065
  10. METFORMIN HCL [Concomitant]
     Route: 065
  11. GLYBURIDE [Concomitant]
     Route: 065
  12. TYLENOL (CAPLET) [Concomitant]
     Dosage: TYLENOL 3
     Route: 065
  13. VITAMIN B-12 [Concomitant]
     Dosage: SWANSONS VITAMIN B12
     Route: 065

REACTIONS (6)
  - ARTHRITIS [None]
  - HYPOAESTHESIA [None]
  - MUSCULOSKELETAL DISCOMFORT [None]
  - NEURALGIA [None]
  - PARANASAL SINUS HYPERSECRETION [None]
  - TINNITUS [None]
